FAERS Safety Report 7987704-9 (Version None)
Quarter: 2011Q4

REPORT INFORMATION
  Report Type: 
  Country: None (occurrence: None)
  Receive Date: 20111216
  Receipt Date: 20110427
  Transmission Date: 20120403
  Serious: No
  Sender: FDA-Public Use
  Company Number: US-BRISTOL-MYERS SQUIBB COMPANY-15703598

PATIENT
  Age: 39 Year
  Sex: Female

DRUGS (3)
  1. ABILIFY [Suspect]
     Indication: MAJOR DEPRESSION
  2. RITALIN [Suspect]
     Indication: MAJOR DEPRESSION
  3. LEXAPRO [Suspect]
     Indication: MAJOR DEPRESSION

REACTIONS (1)
  - TARDIVE DYSKINESIA [None]
